FAERS Safety Report 22232435 (Version 1)
Quarter: 2023Q2

REPORT INFORMATION
  Report Type: Spontaneous
  Country: US (occurrence: None)
  Receive Date: 20230420
  Receipt Date: 20230420
  Transmission Date: 20230721
  Serious: No
  Sender: FDA-Public Use
  Company Number: US-ROCHE-3095097

PATIENT
  Sex: Male

DRUGS (11)
  1. ESBRIET [Suspect]
     Active Substance: PIRFENIDONE
     Indication: Idiopathic pulmonary fibrosis
     Dosage: TAKE 1 TABLET 3 TIMES DAILY X1 WEEK, THEN 2 TABS 3 TIMES DAILY X1 WEEK, THEN 3 TABS 3 TIMES DAILY WI
     Route: 048
     Dates: start: 20220404
  2. ASPIRIN [Concomitant]
     Active Substance: ASPIRIN
  3. B12 ACTIVE [Concomitant]
  4. DUTASTERIDE [Concomitant]
     Active Substance: DUTASTERIDE
  5. HYDROCHLOROTHIAZIDE [Concomitant]
     Active Substance: HYDROCHLOROTHIAZIDE
  6. IPRATROPIUM [Concomitant]
     Active Substance: IPRATROPIUM
  7. LOSARTAN POTASSIUM [Concomitant]
     Active Substance: LOSARTAN POTASSIUM
  8. PANTOPRAZOLE [Concomitant]
     Active Substance: PANTOPRAZOLE
  9. PRAVASTATIN [Concomitant]
     Active Substance: PRAVASTATIN
  10. CHOLECALCIFEROL [Concomitant]
     Active Substance: CHOLECALCIFEROL
  11. VITAMIN E [Concomitant]
     Active Substance: .ALPHA.-TOCOPHEROL

REACTIONS (1)
  - Decreased appetite [Unknown]
